FAERS Safety Report 22964904 (Version 2)
Quarter: 2023Q4

REPORT INFORMATION
  Report Type: Spontaneous
  Country: US (occurrence: US)
  Receive Date: 20230921
  Receipt Date: 20231018
  Transmission Date: 20240110
  Serious: Yes (Hospitalization)
  Sender: FDA-Public Use
  Company Number: US-drreddys-SPO/USA/23/0176810

PATIENT
  Age: 62 Year
  Sex: Male

DRUGS (1)
  1. CLOZAPINE [Suspect]
     Active Substance: CLOZAPINE
     Indication: Product used for unknown indication

REACTIONS (9)
  - Hospitalisation [Unknown]
  - Blood urea increased [Unknown]
  - Blood sodium increased [Unknown]
  - Blood potassium decreased [Unknown]
  - Blood urea nitrogen/creatinine ratio increased [Unknown]
  - Blood osmolarity increased [Unknown]
  - Glomerular filtration rate decreased [Unknown]
  - Neutrophil count increased [Unknown]
  - Immature granulocyte count increased [Unknown]

NARRATIVE: CASE EVENT DATE: 20220804
